FAERS Safety Report 7324304-8 (Version None)
Quarter: 2011Q1

REPORT INFORMATION
  Report Type: 
  Country: None (occurrence: None)
  Receive Date: 20110301
  Receipt Date: 20110214
  Transmission Date: 20110831
  Serious: Yes (Life-Threatening, Hospitalization, Other)
  Sender: FDA-Public Use
  Company Number: JP-AMGEN-US404090

PATIENT
  Age: 63 Year
  Sex: Male
  Weight: 73 kg

DRUGS (10)
  1. HYPEN [Concomitant]
     Indication: RHEUMATOID ARTHRITIS
     Dosage: 200 MG, BID
     Route: 048
  2. ENBREL [Suspect]
     Indication: RHEUMATOID ARTHRITIS
     Dosage: 25 MG, 2 TIMES/WK
     Route: 058
     Dates: start: 20080731, end: 20100322
  3. RHEUMATREX [Concomitant]
     Dosage: 4 MG, QWK
     Route: 048
     Dates: start: 20090304, end: 20100323
  4. RHEUMATREX [Concomitant]
     Dosage: 6 MG, QWK
     Route: 048
     Dates: start: 20080807, end: 20090303
  5. PREDNISOLONE [Concomitant]
     Dosage: 5 MG, QID
     Route: 048
     Dates: end: 20100806
  6. ISONIAZID [Concomitant]
     Indication: PROPHYLAXIS
     Dosage: 300 MG, QD
     Route: 048
     Dates: start: 20080807, end: 20090811
  7. CYTOTEC [Concomitant]
     Indication: PROPHYLAXIS
     Dosage: 200 A?G, BID
     Route: 048
  8. RHEUMATREX [Concomitant]
     Dosage: 8 MG, QWK
     Route: 048
     Dates: end: 20080806
  9. TROXSIN [Concomitant]
     Indication: PROPHYLAXIS
     Dosage: 100 MG, TID
     Route: 048
  10. PREDNISOLONE [Concomitant]
     Dosage: 2.5 MG, QD
     Route: 048
     Dates: start: 20080807, end: 20090707

REACTIONS (2)
  - DISEASE PROGRESSION [None]
  - LARGE CELL CARCINOMA OF THE RESPIRATORY TRACT STAGE UNSPECIFIED [None]
